FAERS Safety Report 4621313-4 (Version None)
Quarter: 2005Q1

REPORT INFORMATION
  Report Type: 
  Country: None (occurrence: None)
  Receive Date: 20050323
  Receipt Date: 20050323
  Transmission Date: 20050727
  Serious: Yes (Hospitalization)
  Sender: FDA-Public Use
  Company Number: None

PATIENT
  Age: 18 Year
  Sex: Female
  Weight: 74.3899 kg

DRUGS (2)
  1. WELLBUTRIN SR [Suspect]
     Indication: ANXIETY
     Dosage: 150  PO
     Route: 048
     Dates: start: 20050125
  2. WELLBUTRIN SR [Suspect]
     Indication: ATTENTION DEFICIT/HYPERACTIVITY DISORDER
     Dosage: 150  PO
     Route: 048
     Dates: start: 20050125

REACTIONS (1)
  - GRAND MAL CONVULSION [None]
